FAERS Safety Report 11259056 (Version 2)
Quarter: 2016Q4

REPORT INFORMATION
  Report Type: Spontaneous
  Country: MX (occurrence: MX)
  Receive Date: 20150710
  Receipt Date: 20161118
  Transmission Date: 20170206
  Serious: Yes (Hospitalization, Congenital Anomaly)
  Sender: FDA-Public Use
  Company Number: MX-SUN PHARMACEUTICAL INDUSTRIES LTD-2015R1-099993

PATIENT
  Sex: Male

DRUGS (1)
  1. AMITRIPTYLINE [Suspect]
     Active Substance: AMITRIPTYLINE
     Indication: DEPRESSION
     Dosage: UNK, QD
     Route: 064

REACTIONS (9)
  - Respiratory failure [Unknown]
  - Atrial septal defect [Unknown]
  - Foetal exposure during pregnancy [Recovered/Resolved]
  - Hydrops foetalis [Unknown]
  - Electrocardiogram QT prolonged [Unknown]
  - Atrioventricular block [Unknown]
  - Talipes [Unknown]
  - Syndactyly [Unknown]
  - Patent ductus arteriosus [Unknown]
